FAERS Safety Report 5932704-3 (Version None)
Quarter: 2008Q4

REPORT INFORMATION
  Report Type: 
  Country: None (occurrence: None)
  Receive Date: 20081027
  Receipt Date: 20081027
  Transmission Date: 20090506
  Serious: Yes (Other)
  Sender: FDA-Public Use
  Company Number: None

PATIENT
  Age: 26 Year
  Sex: Female
  Weight: 79.3795 kg

DRUGS (1)
  1. OCELLA [Suspect]
     Indication: CONTRACEPTION
     Dosage: 1 PILL DAILY

REACTIONS (6)
  - ABDOMINAL DISTENSION [None]
  - ACNE [None]
  - HEADACHE [None]
  - METRORRHAGIA [None]
  - NAUSEA [None]
  - PRODUCT QUALITY ISSUE [None]
